FAERS Safety Report 17856580 (Version 2)
Quarter: 2020Q2

REPORT INFORMATION
  Report Type: Report from Study
  Country: KR (occurrence: KR)
  Receive Date: 20200603
  Receipt Date: 20200605
  Transmission Date: 20200714
  Serious: Yes (Hospitalization)
  Sender: FDA-Public Use
  Company Number: KR-AMGEN-KORNI2020087772

PATIENT
  Age: 58 Year
  Sex: Male
  Weight: 57 kg

DRUGS (12)
  1. LEVOFEXIN [Concomitant]
     Active Substance: LEVOFLOXACIN
     Dosage: 1 UNK
     Dates: start: 20200112
  2. CARFILZOMIB [Suspect]
     Active Substance: CARFILZOMIB
     Indication: PLASMA CELL MYELOMA
     Dosage: UNK MILLIGRAM
     Route: 042
     Dates: start: 20200115
  3. RENALMIN [Concomitant]
     Dosage: 1 UNK
     Dates: start: 2017
  4. TASNA [Concomitant]
     Dosage: 1 UNK
     Dates: start: 2017
  5. ZOYLEX [ACICLOVIR] [Concomitant]
     Dosage: 1 UNK
     Dates: start: 20200112
  6. SEPTRIN [Concomitant]
     Active Substance: SULFAMETHOXAZOLE\TRIMETHOPRIM
     Dosage: 0.5 UNK
     Dates: start: 20200112
  7. LENALIDOMIDE [Concomitant]
     Active Substance: LENALIDOMIDE
     Indication: PLASMA CELL MYELOMA
     Dosage: 525 MILLIGRAM
     Dates: start: 20200115
  8. POLYSTYRENE SULFONATE CALCIUM [Concomitant]
     Active Substance: CALCIUM POLYSTYRENE SULFONATE
     Dosage: 1 UNK (5G/P)
     Dates: start: 20200129
  9. CARFILZOMIB [Suspect]
     Active Substance: CARFILZOMIB
     Dosage: UNK MILLIGRAM
     Route: 042
  10. FEBURIC [Concomitant]
     Active Substance: FEBUXOSTAT
     Dosage: 0 UNK
     Dates: start: 2017
  11. ASPIRIN. [Concomitant]
     Active Substance: ASPIRIN
     Dosage: 1 UNK
     Dates: start: 20200112
  12. DEXAMETHASONE. [Concomitant]
     Active Substance: DEXAMETHASONE
     Indication: PLASMA CELL MYELOMA
     Dosage: 40 MILLIGRAM
     Dates: start: 20200115

REACTIONS (1)
  - Azotaemia [Not Recovered/Not Resolved]

NARRATIVE: CASE EVENT DATE: 20200204
